FAERS Safety Report 17726436 (Version 1)
Quarter: 2020Q2

REPORT INFORMATION
  Report Type: Spontaneous
  Country: LB (occurrence: LB)
  Receive Date: 20200430
  Receipt Date: 20200430
  Transmission Date: 20200714
  Serious: Yes (Life-Threatening, Hospitalization, Other)
  Sender: FDA-Public Use
  Company Number: LB-ASTRAZENECA-2020SE56357

PATIENT
  Sex: Female

DRUGS (1)
  1. TAGRISSO [Suspect]
     Active Substance: OSIMERTINIB
     Indication: SKIN CANCER
     Route: 048
     Dates: start: 20200101, end: 20200307

REACTIONS (2)
  - Loss of consciousness [Unknown]
  - Cardiac arrest [Recovering/Resolving]
